FAERS Safety Report 14426941 (Version 3)
Quarter: 2018Q2

REPORT INFORMATION
  Report Type: Spontaneous
  Country: US (occurrence: US)
  Receive Date: 20180123
  Receipt Date: 20180518
  Transmission Date: 20180711
  Serious: Yes (Other)
  Sender: FDA-Public Use
  Company Number: US-009507513-1801USA007987

PATIENT
  Age: 32 Year
  Sex: Female
  Weight: 149 kg

DRUGS (1)
  1. NEXPLANON [Suspect]
     Active Substance: ETONOGESTREL
     Indication: CONTRACEPTION
     Dosage: 1 IMPLANT, IN THE LEFT ARM
     Route: 059
     Dates: start: 201403, end: 20180509

REACTIONS (5)
  - Complication of device removal [Recovered/Resolved]
  - Incorrect drug administration duration [Unknown]
  - Device dislocation [Recovered/Resolved]
  - Pain in extremity [Unknown]
  - Complication associated with device [Recovered/Resolved]

NARRATIVE: CASE EVENT DATE: 201703
